FAERS Safety Report 16808391 (Version 1)
Quarter: 2019Q3

REPORT INFORMATION
  Report Type: Spontaneous
  Country: GB (occurrence: GB)
  Receive Date: 20190916
  Receipt Date: 20190916
  Transmission Date: 20191005
  Serious: Yes (Other)
  Sender: FDA-Public Use
  Company Number: GB-ACCORD-154856

PATIENT
  Age: 40 Year
  Sex: Female

DRUGS (5)
  1. MIRENA [Concomitant]
     Active Substance: LEVONORGESTREL
  2. LOPERAMIDE [Concomitant]
     Active Substance: LOPERAMIDE
  3. THYROXINE [Concomitant]
     Active Substance: LEVOTHYROXINE
  4. SERTRALINE [Suspect]
     Active Substance: SERTRALINE HYDROCHLORIDE
     Indication: ANXIETY
     Dosage: 50MG INITIALLY BUT SIDE EFFECTS APPEARED WHEN UPPED
     Route: 048
     Dates: start: 201907, end: 20190820
  5. SERTRALINE [Suspect]
     Active Substance: SERTRALINE HYDROCHLORIDE
     Indication: ANXIETY
     Route: 048
     Dates: start: 201905, end: 201907

REACTIONS (4)
  - Skin exfoliation [Recovered/Resolved]
  - Muscle spasms [Recovered/Resolved]
  - Dyspepsia [Recovered/Resolved]
  - Dyskinesia [Unknown]

NARRATIVE: CASE EVENT DATE: 201907
